FAERS Safety Report 8996658 (Version 3)
Quarter: 2013Q3

REPORT INFORMATION
  Report Type: Spontaneous
  Country: US (occurrence: US)
  Receive Date: 20130104
  Receipt Date: 20130812
  Transmission Date: 20140515
  Serious: Yes (Other)
  Sender: FDA-Public Use
  Company Number: US-BAYER-2013-000746

PATIENT
  Age: 32 Year
  Sex: Female

DRUGS (2)
  1. MIRENA [Suspect]
     Indication: CONTRACEPTION
     Dosage: 20 MCG/24HR, CONT
     Route: 015
     Dates: start: 20120921, end: 20130117
  2. MIRENA [Suspect]
     Indication: MENORRHAGIA

REACTIONS (10)
  - Post procedural haemorrhage [Not Recovered/Not Resolved]
  - Vaginal discharge [Not Recovered/Not Resolved]
  - Abdominal pain lower [Not Recovered/Not Resolved]
  - Medical device discomfort [Not Recovered/Not Resolved]
  - Drug ineffective [None]
  - Genital haemorrhage [None]
  - Ovarian cyst [None]
  - Urinary tract infection [Recovered/Resolved]
  - Urinary tract infection [None]
  - Cystitis interstitial [None]
